FAERS Safety Report 7064309-8 (Version None)
Quarter: 2010Q4

REPORT INFORMATION
  Report Type: 
  Country: None (occurrence: None)
  Receive Date: 20101022
  Receipt Date: 20101022
  Transmission Date: 20110411
  Serious: No
  Sender: FDA-Public Use
  Company Number: None

PATIENT
  Sex: Female
  Weight: 87.9978 kg

DRUGS (1)
  1. ANASTRAZOLE [Suspect]
     Indication: BREAST CANCER
     Dosage: 1MG DAILY PO
     Route: 048
     Dates: start: 20100816, end: 20101006

REACTIONS (4)
  - DISCOMFORT [None]
  - INFLUENZA LIKE ILLNESS [None]
  - OEDEMA PERIPHERAL [None]
  - PAIN IN EXTREMITY [None]
